FAERS Safety Report 8310707-1 (Version None)
Quarter: 2012Q2

REPORT INFORMATION
  Report Type: 
  Country: None (occurrence: None)
  Receive Date: 20120425
  Receipt Date: 20120421
  Transmission Date: 20120825
  Serious: Yes (Life-Threatening, Hospitalization, Other)
  Sender: FDA-Public Use
  Company Number: PT-ASTRAZENECA-2012SE25962

PATIENT
  Age: 54 Year
  Sex: Male

DRUGS (8)
  1. ACYCLOVIR [Interacting]
     Indication: INFECTION
     Route: 048
     Dates: start: 20120327
  2. NEUPOGEN [Concomitant]
     Indication: AGRANULOCYTOSIS
     Route: 058
     Dates: start: 20120325
  3. CORDARONE [Interacting]
     Indication: SUPRAVENTRICULAR TACHYARRHYTHMIA
     Route: 048
     Dates: start: 20120201, end: 20120328
  4. BACTRIM DS [Concomitant]
     Indication: PROPHYLAXIS
     Route: 048
     Dates: end: 20120321
  5. MEROPENEM [Suspect]
     Indication: INFECTION
     Route: 042
     Dates: start: 20120321, end: 20120329
  6. FLUCONAZOLE [Interacting]
     Indication: INFECTION
     Route: 048
     Dates: start: 20120301
  7. LEXOTAN [Concomitant]
     Indication: INSOMNIA
     Route: 048
     Dates: end: 20120321
  8. PANTOPRAZOL TOLIFE [Concomitant]
     Indication: PROPHYLAXIS AGAINST GASTROINTESTINAL ULCER
     Route: 048
     Dates: start: 20110615, end: 20120321

REACTIONS (3)
  - AGRANULOCYTOSIS [None]
  - DRUG INTERACTION [None]
  - LEUKOPENIA [None]
